FAERS Safety Report 6384529-5 (Version None)
Quarter: 2009Q3

REPORT INFORMATION
  Report Type: 
  Country: None (occurrence: None)
  Receive Date: 20090924
  Receipt Date: 20090210
  Transmission Date: 20100115
  Serious: No
  Sender: FDA-Public Use
  Company Number: US-CVT-090013

PATIENT
  Age: 61 Year
  Sex: Male

DRUGS (2)
  1. RANEXA [Suspect]
     Indication: ANGINA PECTORIS
     Dosage: 500 MG, QD, ORAL; 1000 MG, QD, ORAL
     Route: 048
     Dates: start: 20090101, end: 20090113
  2. RANEXA [Suspect]
     Indication: ANGINA PECTORIS
     Dosage: 500 MG, QD, ORAL; 1000 MG, QD, ORAL
     Route: 048
     Dates: start: 20090114, end: 20090116

REACTIONS (5)
  - DIARRHOEA [None]
  - NAUSEA [None]
  - NEPHROLITHIASIS [None]
  - URINARY TRACT INFECTION [None]
  - VOMITING [None]
